FAERS Safety Report 5817686-7 (Version None)
Quarter: 2008Q3

REPORT INFORMATION
  Report Type: 
  Country: None (occurrence: None)
  Receive Date: 20080716
  Receipt Date: 20080710
  Transmission Date: 20090109
  Serious: Yes (Hospitalization)
  Sender: FDA-Public Use
  Company Number: TOR-2008-0033

PATIENT
  Age: 55 Year
  Sex: Female

DRUGS (2)
  1. FARESTON [Suspect]
     Indication: BREAST CANCER
     Dosage: 120 MG  ORAL
     Route: 048
     Dates: start: 20080610
  2. ZOLEDRONIC ACID [Suspect]
     Indication: BREAST CANCER
     Dosage: 4 MG, ORAL
     Route: 048
     Dates: start: 20050609

REACTIONS (6)
  - BACK PAIN [None]
  - BONE PAIN [None]
  - C-REACTIVE PROTEIN INCREASED [None]
  - IMPAIRED WORK ABILITY [None]
  - PELVIC PAIN [None]
  - PYREXIA [None]
